FAERS Safety Report 9382156 (Version 1)
Quarter: 2013Q3

REPORT INFORMATION
  Report Type: Spontaneous
  Country: US (occurrence: US)
  Receive Date: 20130703
  Receipt Date: 20130703
  Transmission Date: 20140515
  Serious: Yes (Hospitalization)
  Sender: FDA-Public Use
  Company Number: US-DYAX CORP.-2013DX000133

PATIENT
  Age: 39 Year
  Sex: Female
  Weight: 85.35 kg

DRUGS (12)
  1. KALBITOR [Suspect]
     Indication: HEREDITARY ANGIOEDEMA
     Route: 058
     Dates: start: 201306, end: 201306
  2. KALBITOR [Suspect]
     Indication: VOCAL CORD DISORDER
     Route: 058
     Dates: start: 201305, end: 201305
  3. KALBITOR [Suspect]
     Route: 058
     Dates: start: 201305, end: 201305
  4. KALBITOR [Suspect]
     Route: 058
     Dates: start: 201301
  5. CINRYZE [Concomitant]
     Indication: PRODUCT USED FOR UNKNOWN INDICATION
     Route: 065
     Dates: start: 201301
  6. DANAZOL [Concomitant]
     Indication: PRODUCT USED FOR UNKNOWN INDICATION
     Route: 065
     Dates: start: 201301
  7. REGLAN [Concomitant]
     Indication: PRODUCT USED FOR UNKNOWN INDICATION
     Route: 065
  8. HYDROCHLOROTHIAZIDE [Concomitant]
     Indication: PRODUCT USED FOR UNKNOWN INDICATION
     Route: 065
  9. MIRALAX [Concomitant]
     Indication: PRODUCT USED FOR UNKNOWN INDICATION
     Route: 065
  10. DILAUDID [Concomitant]
     Indication: PRODUCT USED FOR UNKNOWN INDICATION
     Route: 065
  11. DEXILANT [Concomitant]
     Indication: PRODUCT USED FOR UNKNOWN INDICATION
     Route: 065
  12. METFORMIN [Concomitant]
     Indication: PRODUCT USED FOR UNKNOWN INDICATION
     Route: 065

REACTIONS (10)
  - Vocal cord disorder [Not Recovered/Not Resolved]
  - Hereditary angioedema [Recovered/Resolved]
  - Dysphonia [Unknown]
  - Dizziness [Unknown]
  - Swelling face [Unknown]
  - Pharyngeal oedema [Recovered/Resolved]
  - Abdominal pain [Recovering/Resolving]
  - Reflux laryngitis [Unknown]
  - Somnolence [Recovered/Resolved]
  - Off label use [Unknown]
